FAERS Safety Report 8513332-2 (Version None)
Quarter: 2012Q3

REPORT INFORMATION
  Report Type: 
  Country: None (occurrence: None)
  Receive Date: 20120716
  Receipt Date: 20120706
  Transmission Date: 20120928
  Serious: Yes (Hospitalization)
  Sender: FDA-Public Use
  Company Number: IT-TEVA-347025ISR

PATIENT
  Sex: Male

DRUGS (1)
  1. OXALIPLATIN [Suspect]
     Indication: COLON CANCER
     Dosage: 120 MILLIGRAM;
     Route: 041
     Dates: start: 20120607, end: 20120607

REACTIONS (3)
  - BRONCHOSPASM [None]
  - PHOTOPHOBIA [None]
  - RASH [None]
